FAERS Safety Report 9551857 (Version 1)
Quarter: 2013Q3

REPORT INFORMATION
  Report Type: Spontaneous
  Country: US (occurrence: US)
  Receive Date: 20130925
  Receipt Date: 20130925
  Transmission Date: 20140515
  Serious: Yes (Hospitalization)
  Sender: FDA-Public Use
  Company Number: US-AMGEN-USASP2013066019

PATIENT
  Age: 80 Year
  Sex: Male

DRUGS (2)
  1. XGEVA [Suspect]
     Indication: PROSTATE CANCER
     Dosage: UNK
     Route: 065
  2. PROVENGE [Concomitant]
     Indication: PROSTATE CANCER

REACTIONS (2)
  - Malaise [Not Recovered/Not Resolved]
  - Blood calcium decreased [Not Recovered/Not Resolved]
